FAERS Safety Report 4930795-X (Version None)
Quarter: 2006Q1

REPORT INFORMATION
  Report Type: 
  Country: None (occurrence: None)
  Receive Date: 20060227
  Receipt Date: 20060215
  Transmission Date: 20060701
  Serious: Yes (Hospitalization, Other)
  Sender: FDA-Public Use
  Company Number: 2005168097

PATIENT
  Age: 79 Year
  Sex: Female

DRUGS (8)
  1. LYRICA [Suspect]
     Indication: BACK PAIN
     Dosage: 50 MG (25 MG, 2 IN 1 D), ORAL
     Route: 048
     Dates: start: 20050919, end: 20050923
  2. BURANA (IBUPROFEN) [Suspect]
     Indication: ILL-DEFINED DISORDER
     Dosage: ORAL
     Route: 048
     Dates: start: 20050916
  3. OXYCONTIN [Concomitant]
  4. CIPRALEX (ESCITALOPRAM) [Concomitant]
  5. EMCONCOR (BISOPROLOL) [Concomitant]
  6. NITROSID (ISOSORBIDE DINITRATE) [Concomitant]
  7. COZAAR [Concomitant]
  8. DISPERIN (ACETYLSALICYLIC ACID, ALUMINIUM GLYCINATE, MAGNESIUM CARBONA [Concomitant]

REACTIONS (4)
  - DEMENTIA ALZHEIMER'S TYPE [None]
  - DEPRESSED LEVEL OF CONSCIOUSNESS [None]
  - LABORATORY TEST ABNORMAL [None]
  - SNORING [None]
